FAERS Safety Report 8088061-2 (Version None)
Quarter: 2012Q1

REPORT INFORMATION
  Report Type: 
  Country: None (occurrence: None)
  Receive Date: 20120128
  Receipt Date: 20110527
  Transmission Date: 20120608
  Serious: No
  Sender: FDA-Public Use
  Company Number: US-ABBOTT-11P-163-0729221-00

PATIENT
  Age: 60 Year
  Sex: Female

DRUGS (8)
  1. ZANTAC [Concomitant]
     Indication: GASTROOESOPHAGEAL REFLUX DISEASE
     Dosage: 150 MG BID
  2. ATENOLOL [Concomitant]
     Indication: PALPITATIONS
     Dosage: 50 MG DAILY
  3. SULFAZINE [Concomitant]
     Indication: RHEUMATOID ARTHRITIS
     Dosage: 500 MG 2 TABLETS BID
  4. NAPROXEN (ALEVE) [Concomitant]
     Indication: PAIN
     Dosage: 200 MG BID
  5. HUMIRA [Suspect]
     Indication: RHEUMATOID ARTHRITIS
     Dosage: INITIAL DOSE
     Dates: start: 20110512
  6. PLAQUENIL [Concomitant]
     Indication: RHEUMATOID ARTHRITIS
     Dosage: 500 MG 2 TABLETS BID
  7. VITAMIN TAB [Concomitant]
     Indication: PRODUCT USED FOR UNKNOWN INDICATION
     Dosage: DAILY
  8. SUPPLEMENTS [Concomitant]
     Indication: PRODUCT USED FOR UNKNOWN INDICATION
     Dosage: DAILY

REACTIONS (3)
  - MUSCLE SPASMS [None]
  - NAUSEA [None]
  - URINARY TRACT INFECTION [None]
